FAERS Safety Report 15232484 (Version 14)
Quarter: 2021Q2

REPORT INFORMATION
  Report Type: Report from Study
  Country: US (occurrence: US)
  Receive Date: 20180802
  Receipt Date: 20210408
  Transmission Date: 20210716
  Serious: Yes (Other)
  Sender: FDA-Public Use
  Company Number: US-INCYTE CORPORATION-2018IN006773

PATIENT

DRUGS (29)
  1. JAKAFI [Suspect]
     Active Substance: RUXOLITINIB
     Dosage: 10 MILLIGRAM, BID
     Route: 048
  2. JAKAFI [Suspect]
     Active Substance: RUXOLITINIB
     Dosage: 5 MG QAM ANG 15 MG QPM
     Route: 048
     Dates: start: 20171218
  3. ZOLPIDEM [Concomitant]
     Active Substance: ZOLPIDEM TARTRATE
     Indication: PRODUCT USED FOR UNKNOWN INDICATION
     Dosage: UNK, QHS
     Route: 065
  4. JAKAFI [Suspect]
     Active Substance: RUXOLITINIB
     Dosage: 10 MILLIGRAM, QD
     Route: 065
  5. JAKAFI [Suspect]
     Active Substance: RUXOLITINIB
     Dosage: 5 MILLIGRAM, BID
     Route: 065
  6. JAKAFI [Suspect]
     Active Substance: RUXOLITINIB
     Dosage: 10 MILLIGRAM, BID
     Route: 048
     Dates: start: 20180627
  7. CARVEDILOL. [Concomitant]
     Active Substance: CARVEDILOL
     Indication: PRODUCT USED FOR UNKNOWN INDICATION
     Dosage: UNK
     Route: 065
  8. JAKAFI [Suspect]
     Active Substance: RUXOLITINIB
     Dosage: 15 MILLIGRAM, BID
     Route: 048
     Dates: start: 20180627
  9. JAKAFI [Suspect]
     Active Substance: RUXOLITINIB
     Dosage: 5 MG QAM AND 15MG QPM
     Route: 065
  10. CRESTOR [Suspect]
     Active Substance: ROSUVASTATIN CALCIUM
     Dosage: UNK, EVERY THREE DAYS
     Route: 065
  11. JAKAFI [Suspect]
     Active Substance: RUXOLITINIB
     Dosage: 15 MILLIGRAM, BID
     Route: 048
  12. JAKAFI [Suspect]
     Active Substance: RUXOLITINIB
     Dosage: 10 MILLIGRAM, BID
     Route: 048
     Dates: start: 20180627
  13. JAKAFI [Suspect]
     Active Substance: RUXOLITINIB
     Dosage: 5 MG QAM AND 10MG QPM
     Route: 048
  14. JAKAFI [Suspect]
     Active Substance: RUXOLITINIB
     Dosage: 5 MILLIGRAM
     Route: 048
  15. JAKAFI [Suspect]
     Active Substance: RUXOLITINIB
     Dosage: 15 MILLIGRAM, BID
     Route: 048
     Dates: start: 20171218
  16. JAKAFI [Suspect]
     Active Substance: RUXOLITINIB
     Dosage: 5 MILLIGRAM, BID
     Route: 048
  17. GABAPENTIN. [Concomitant]
     Active Substance: GABAPENTIN
     Indication: PRODUCT USED FOR UNKNOWN INDICATION
     Dosage: UNK
     Route: 065
  18. BABY ASPIRIN [Concomitant]
     Active Substance: ASPIRIN
     Indication: PRODUCT USED FOR UNKNOWN INDICATION
     Dosage: UNK
     Route: 065
  19. JAKAFI [Suspect]
     Active Substance: RUXOLITINIB
     Indication: POLYCYTHAEMIA VERA
     Dosage: 15 MILLIGRAM
     Route: 065
     Dates: start: 201712
  20. JAKAFI [Suspect]
     Active Substance: RUXOLITINIB
     Dosage: 10 MILLIGRAM, QD
     Route: 065
  21. CRESTOR [Suspect]
     Active Substance: ROSUVASTATIN CALCIUM
     Indication: PRODUCT USED FOR UNKNOWN INDICATION
     Dosage: UNK, QD
     Route: 065
  22. LASIX [Suspect]
     Active Substance: FUROSEMIDE
     Indication: PRODUCT USED FOR UNKNOWN INDICATION
     Dosage: UNK
     Route: 065
  23. JAKAFI [Suspect]
     Active Substance: RUXOLITINIB
     Dosage: 15 MILLIGRAM, QD
     Route: 065
  24. JAKAFI [Suspect]
     Active Substance: RUXOLITINIB
     Dosage: 10 MILLIGRAM, BID
     Route: 065
     Dates: start: 20171218
  25. JAKAFI [Suspect]
     Active Substance: RUXOLITINIB
     Dosage: 15 MILLIGRAM, BID
     Route: 048
     Dates: start: 20171218
  26. JAKAFI [Suspect]
     Active Substance: RUXOLITINIB
     Dosage: 7.5 MILLIGRAM, BID
     Route: 048
  27. JAKAFI [Suspect]
     Active Substance: RUXOLITINIB
     Dosage: 15 MILLIGRAM, BID
     Route: 048
     Dates: start: 20180627
  28. JAKAFI [Suspect]
     Active Substance: RUXOLITINIB
     Dosage: 10 MILLIGRAM, QD
     Route: 048
     Dates: start: 202011
  29. COREG [Suspect]
     Active Substance: CARVEDILOL
     Indication: PRODUCT USED FOR UNKNOWN INDICATION
     Route: 065

REACTIONS (48)
  - Cardiac disorder [Unknown]
  - Frustration tolerance decreased [Unknown]
  - Sensitive skin [Not Recovered/Not Resolved]
  - Intentional product use issue [Unknown]
  - Drug effect faster than expected [Not Recovered/Not Resolved]
  - Asthenia [Unknown]
  - Memory impairment [Unknown]
  - Testis discomfort [Unknown]
  - Wrong technique in product usage process [Unknown]
  - Terminal state [Unknown]
  - Drug intolerance [Unknown]
  - Gait inability [Unknown]
  - Anorectal discomfort [Unknown]
  - Genital herpes [Unknown]
  - Dolichocolon [Not Recovered/Not Resolved]
  - Platelet count increased [Unknown]
  - Blood potassium increased [Unknown]
  - Feeling abnormal [Unknown]
  - Skin burning sensation [Not Recovered/Not Resolved]
  - Back pain [Unknown]
  - Mean cell volume decreased [Unknown]
  - Burning sensation [Not Recovered/Not Resolved]
  - Hernia [Unknown]
  - Erythema [Recovering/Resolving]
  - Skin cancer [Unknown]
  - Blood disorder [Unknown]
  - Pain [Unknown]
  - Increased tendency to bruise [Not Recovered/Not Resolved]
  - Gastrointestinal disorder [Not Recovered/Not Resolved]
  - Product dose omission issue [Unknown]
  - Haemoglobin abnormal [Unknown]
  - Fatigue [Unknown]
  - Skin atrophy [Unknown]
  - Influenza like illness [Unknown]
  - Rash [Not Recovered/Not Resolved]
  - Proctalgia [Unknown]
  - Agitation [Unknown]
  - Skin ulcer [Unknown]
  - Sleep disorder [Not Recovered/Not Resolved]
  - Thinking abnormal [Recovering/Resolving]
  - Joint injury [Unknown]
  - Blood sodium decreased [Unknown]
  - Sciatica [Unknown]
  - Communication disorder [Unknown]
  - Feeling of body temperature change [Not Recovered/Not Resolved]
  - Anger [Unknown]
  - Hypoacusis [Unknown]
  - Accident [Not Recovered/Not Resolved]

NARRATIVE: CASE EVENT DATE: 201809
